FAERS Safety Report 14722816 (Version 2)
Quarter: 2018Q2

REPORT INFORMATION
  Report Type: Spontaneous
  Country: FI (occurrence: FI)
  Receive Date: 20180405
  Receipt Date: 20180419
  Transmission Date: 20180711
  Serious: Yes (Hospitalization)
  Sender: FDA-Public Use
  Company Number: FI-JNJFOC-20180402886

PATIENT
  Age: 54 Year
  Sex: Male

DRUGS (5)
  1. BISOPROACT [Concomitant]
     Active Substance: BISOPROLOL
     Route: 065
     Dates: start: 20170718
  2. CARDACE                            /00885601/ [Concomitant]
     Route: 065
     Dates: start: 20170719
  3. STELARA [Suspect]
     Active Substance: USTEKINUMAB
     Indication: PSORIASIS
     Route: 058
     Dates: start: 20110101
  4. VESIX [Concomitant]
     Route: 065
     Dates: start: 20170719
  5. ELIQUIS [Concomitant]
     Active Substance: APIXABAN
     Route: 065
     Dates: start: 20171109

REACTIONS (5)
  - Staphylococcal infection [Not Recovered/Not Resolved]
  - Arthritis bacterial [Not Recovered/Not Resolved]
  - Pyrexia [Not Recovered/Not Resolved]
  - Drug ineffective [Not Recovered/Not Resolved]
  - C-reactive protein increased [Not Recovered/Not Resolved]

NARRATIVE: CASE EVENT DATE: 20180123
